FAERS Safety Report 5028826-4 (Version None)
Quarter: 2006Q2

REPORT INFORMATION
  Report Type: 
  Country: None (occurrence: None)
  Receive Date: 20060501
  Receipt Date: 20060322
  Transmission Date: 20061013
  Serious: No
  Sender: FDA-Public Use
  Company Number: 200612820US

PATIENT

DRUGS (1)
  1. KETEK [Suspect]

REACTIONS (1)
  - HEPATIC ENZYME INCREASED [None]
